FAERS Safety Report 8603555-6 (Version None)
Quarter: 2012Q3

REPORT INFORMATION
  Report Type: 
  Country: None (occurrence: None)
  Receive Date: 20120817
  Receipt Date: 20120807
  Transmission Date: 20120928
  Serious: Yes (Other)
  Sender: FDA-Public Use
  Company Number: CHPA2012US018201

PATIENT
  Age: 81 Year
  Sex: Female

DRUGS (2)
  1. EXCEDRIN (MIGRAINE) [Suspect]
     Indication: MIGRAINE
     Dosage: 2 DF, ONCE/SINGLE
     Route: 048
     Dates: start: 20090101, end: 20090101
  2. LOVAZA [Concomitant]
     Indication: BLOOD CHOLESTEROL INCREASED
     Dosage: UNK, UNK
     Dates: end: 20110101

REACTIONS (6)
  - ABDOMINAL DISCOMFORT [None]
  - BACK INJURY [None]
  - MALAISE [None]
  - JOINT SWELLING [None]
  - PAIN [None]
  - UPPER LIMB FRACTURE [None]
